FAERS Safety Report 5302412-0 (Version None)
Quarter: 2007Q3

REPORT INFORMATION
  Report Type: 
  Country: None (occurrence: None)
  Receive Date: 20070413
  Receipt Date: 20070402
  Transmission Date: 20080115
  Serious: Yes (Hospitalization)
  Sender: FDA-Public Use
  Company Number: T06-JPN-03569-01

PATIENT
  Age: 88 Year
  Sex: Male
  Weight: 66.9 kg

DRUGS (8)
  1. MEMANTINE HCL [Suspect]
     Indication: DEMENTIA ALZHEIMER'S TYPE
     Dosage: 20 MG QD PO
     Route: 048
     Dates: start: 20060225, end: 20060811
  2. MEMANTINE HCL [Suspect]
     Indication: DEMENTIA ALZHEIMER'S TYPE
     Dates: start: 20060128, end: 20060224
  3. AMLODIPINE BESYLATE [Concomitant]
  4. TEPRENONE [Concomitant]
  5. ASPIRIN [Concomitant]
  6. URSODIOL [Concomitant]
  7. TERBINAFINE HCL [Concomitant]
  8. BETAMETHASONE DIPROPIONATE [Concomitant]

REACTIONS (8)
  - ARTHRITIS [None]
  - BLOOD PRESSURE SYSTOLIC INCREASED [None]
  - BRONCHOPNEUMONIA [None]
  - C-REACTIVE PROTEIN INCREASED [None]
  - COUGH [None]
  - DECREASED ACTIVITY [None]
  - PYREXIA [None]
  - SOMNOLENCE [None]
